FAERS Safety Report 15530256 (Version 7)
Quarter: 2023Q4

REPORT INFORMATION
  Report Type: Spontaneous
  Country: US (occurrence: US)
  Receive Date: 20181018
  Receipt Date: 20231212
  Transmission Date: 20240110
  Serious: Yes (Other)
  Sender: FDA-Public Use
  Company Number: US-PFIZER INC-2018418618

PATIENT
  Age: 62 Year
  Sex: Female

DRUGS (3)
  1. BOSULIF [Suspect]
     Active Substance: BOSUTINIB MONOHYDRATE
     Indication: Chronic myeloid leukaemia
     Dosage: 500 MG, 1 TABLET WITH BREAKFAST
     Route: 048
     Dates: start: 2016
  2. BOSULIF [Suspect]
     Active Substance: BOSUTINIB MONOHYDRATE
     Dosage: 400 MG
  3. BOSULIF [Suspect]
     Active Substance: BOSUTINIB MONOHYDRATE
     Dosage: 100 MG TAKE 3 TABS QD WITH BREAKFAST
     Route: 048

REACTIONS (10)
  - Pericardial effusion [Unknown]
  - Insomnia [Unknown]
  - Diarrhoea [Recovered/Resolved]
  - Decreased appetite [Unknown]
  - Oropharyngeal pain [Recovering/Resolving]
  - Nasal congestion [Recovering/Resolving]
  - Headache [Recovering/Resolving]
  - Alopecia [Unknown]
  - Nasopharyngitis [Recovering/Resolving]
  - Intentional product misuse [Unknown]

NARRATIVE: CASE EVENT DATE: 20160601
